FAERS Safety Report 5562754-0 (Version None)
Quarter: 2007Q4

REPORT INFORMATION
  Report Type: 
  Country: None (occurrence: None)
  Receive Date: 20071211
  Receipt Date: 20071211
  Transmission Date: 20080405
  Serious: Yes (Life-Threatening)
  Sender: FDA-Public Use
  Company Number: None

PATIENT
  Age: 34 Year
  Sex: Male
  Weight: 68.0396 kg

DRUGS (1)
  1. ALBUTEROL SULFATE HFA INHALER 200 METERED INHALATIONS PROAIR HFA [Suspect]
     Indication: ASTHMA
     Dosage: 2 PUFFS  EVERY 4-6 HOURS  INHAL
     Route: 055
     Dates: start: 20060601, end: 20071210

REACTIONS (4)
  - DRUG INEFFECTIVE [None]
  - HYPERTENSION [None]
  - PAIN [None]
  - PHARMACEUTICAL PRODUCT COMPLAINT [None]
